FAERS Safety Report 16787616 (Version 5)
Quarter: 2020Q1

REPORT INFORMATION
  Report Type: Report from Study
  Country: US (occurrence: US)
  Receive Date: 20190909
  Receipt Date: 20200120
  Transmission Date: 20200409
  Serious: Yes (Other)
  Sender: FDA-Public Use
  Company Number: US-PFIZER INC-2019311651

PATIENT
  Age: 75 Year
  Sex: Female

DRUGS (2)
  1. IBRANCE [Suspect]
     Active Substance: PALBOCICLIB
     Dosage: 125 MG, CYCLIC (DAILY, 21 DAYS ON/7 DAYS OFF)
     Route: 048
     Dates: start: 20190912
  2. IBRANCE [Suspect]
     Active Substance: PALBOCICLIB
     Indication: BREAST CANCER FEMALE
     Dosage: 125 MG, CYCLIC (DAILY, 21 DAYS ON/7 DAYS OFF)
     Route: 048
     Dates: start: 20190712, end: 20190804

REACTIONS (9)
  - Diarrhoea [Not Recovered/Not Resolved]
  - Nasopharyngitis [Unknown]
  - Fatigue [Not Recovered/Not Resolved]
  - Hypercalcaemia [Unknown]
  - Rhinorrhoea [Unknown]
  - Bone marrow failure [Unknown]
  - Weight decreased [Unknown]
  - Nausea [Recovered/Resolved]
  - Decreased appetite [Unknown]

NARRATIVE: CASE EVENT DATE: 2019
